FAERS Safety Report 17561383 (Version 6)
Quarter: 2025Q4

REPORT INFORMATION
  Report Type: Spontaneous
  Country: US (occurrence: US)
  Receive Date: 20200319
  Receipt Date: 20251029
  Transmission Date: 20260118
  Serious: Yes (Other)
  Sender: VERTEX
  Company Number: US-VERTEX PHARMACEUTICALS-2020-001779

PATIENT
  Age: 23 Year
  Sex: Female

DRUGS (21)
  1. TRIKAFTA [Suspect]
     Active Substance: ELEXACAFTOR\IVACAFTOR\TEZACAFTOR
     Indication: Cystic fibrosis
     Dosage: QUARTER OF ONE PILL, AM
     Route: 048
     Dates: start: 20191211, end: 20191214
  2. TRIKAFTA [Suspect]
     Active Substance: ELEXACAFTOR\IVACAFTOR\TEZACAFTOR
     Dosage: HALF PILL FOR 7 DAYS
     Route: 048
     Dates: start: 20191213, end: 20191221
  3. TRIKAFTA [Suspect]
     Active Substance: ELEXACAFTOR\IVACAFTOR\TEZACAFTOR
     Dosage: 1 ORANGE TABLET, QD PM
     Route: 048
     Dates: start: 20191213
  4. TRIKAFTA [Suspect]
     Active Substance: ELEXACAFTOR\IVACAFTOR\TEZACAFTOR
     Dosage: REGULAR DOSE
     Route: 048
     Dates: start: 2019, end: 202004
  5. TRIKAFTA [Suspect]
     Active Substance: ELEXACAFTOR\IVACAFTOR\TEZACAFTOR
     Dosage: HALF ORANGE PILL
     Route: 048
     Dates: start: 20211028
  6. TRIKAFTA [Suspect]
     Active Substance: ELEXACAFTOR\IVACAFTOR\TEZACAFTOR
     Dosage: ONE ORANGE PILL PER DAY
     Route: 048
     Dates: end: 20220611
  7. ELIQUIS [Suspect]
     Active Substance: APIXABAN
     Indication: Internal haemorrhage
     Dosage: UNK
     Route: 065
  8. ZENPEP [Concomitant]
     Active Substance: PANCRELIPASE AMYLASE\PANCRELIPASE LIPASE\PANCRELIPASE PROTEASE
  9. PROMETHAZINE [Concomitant]
     Active Substance: PROMETHAZINE HYDROCHLORIDE
  10. BREO ELLIPTA [Concomitant]
     Active Substance: FLUTICASONE FUROATE\VILANTEROL TRIFENATATE
  11. TRAMADOL [Concomitant]
     Active Substance: TRAMADOL
  12. DULOXETINE [Concomitant]
     Active Substance: DULOXETINE
  13. GABAPENTIN [Concomitant]
     Active Substance: GABAPENTIN
  14. METHOCARBAMOL [Concomitant]
     Active Substance: METHOCARBAMOL
  15. ACYCLOVIR [Concomitant]
     Active Substance: ACYCLOVIR
  16. FORMOTEROL [Concomitant]
     Active Substance: FORMOTEROL
  17. PULMOZYME [Concomitant]
     Active Substance: DORNASE ALFA
  18. EMGALITY [Concomitant]
     Active Substance: GALCANEZUMAB-GNLM
  19. DUONEB [Concomitant]
     Active Substance: ALBUTEROL SULFATE\IPRATROPIUM BROMIDE
  20. FLOVENT [Concomitant]
     Active Substance: FLUTICASONE PROPIONATE
  21. VITAMIN D3 [Concomitant]
     Active Substance: CHOLECALCIFEROL

REACTIONS (16)
  - Weight decreased [Unknown]
  - Gastrointestinal disorder [Unknown]
  - Dizziness [Recovered/Resolved]
  - White blood cell count decreased [Unknown]
  - Contusion [Recovering/Resolving]
  - Fatigue [Recovered/Resolved]
  - Somnolence [Recovered/Resolved]
  - Hepatic enzyme increased [Unknown]
  - Hepatic failure [Unknown]
  - Asthenia [Recovering/Resolving]
  - Internal haemorrhage [Recovering/Resolving]
  - Decreased appetite [Recovering/Resolving]
  - Illness [Unknown]
  - Restlessness [Unknown]
  - Cough [Not Recovered/Not Resolved]
  - Irritability [Unknown]

NARRATIVE: CASE EVENT DATE: 20200227
